FAERS Safety Report 9547420 (Version 11)
Quarter: 2015Q2

REPORT INFORMATION
  Report Type: Report from Study
  Country: IL (occurrence: IL)
  Receive Date: 20130924
  Receipt Date: 20150619
  Transmission Date: 20150821
  Serious: Yes (Other)
  Sender: FDA-Public Use
  Company Number: PHHY2013IL026062

PATIENT
  Age: 63 Year
  Sex: Female
  Weight: 92.8 kg

DRUGS (4)
  1. TASIGNA [Suspect]
     Active Substance: NILOTINIB
     Indication: CHRONIC MYELOID LEUKAEMIA
     Dosage: 400 MG, BID
     Route: 048
     Dates: start: 2011
  2. METFORMIN [Concomitant]
     Active Substance: METFORMIN HYDROCHLORIDE
     Indication: PRODUCT USED FOR UNKNOWN INDICATION
     Route: 065
  3. TASIGNA [Suspect]
     Active Substance: NILOTINIB
     Dosage: 600 MG, (400 MG IN THE MORNING AND 200 MG IN THE EVENING)
     Route: 048
  4. TASIGNA [Suspect]
     Active Substance: NILOTINIB
     Dosage: 200 MG, BID
     Route: 048
     Dates: start: 2012

REACTIONS (49)
  - Skin lesion [Unknown]
  - Fat tissue increased [Not Recovered/Not Resolved]
  - Lipoma [Unknown]
  - Anaemia [Unknown]
  - Abdominal pain [Recovered/Resolved]
  - Hair texture abnormal [Not Recovered/Not Resolved]
  - Ear infection [Not Recovered/Not Resolved]
  - Blood glucose decreased [Unknown]
  - Glycosylated haemoglobin decreased [Unknown]
  - Burning sensation [Unknown]
  - Decreased appetite [Unknown]
  - Asthenia [Not Recovered/Not Resolved]
  - Abdominal discomfort [Unknown]
  - Discomfort [Unknown]
  - Eructation [Unknown]
  - Malaise [Unknown]
  - Fatigue [Not Recovered/Not Resolved]
  - Blood glucose increased [Not Recovered/Not Resolved]
  - Cough [Recovered/Resolved]
  - Thirst decreased [Unknown]
  - Dysgeusia [Recovered/Resolved]
  - Gastritis erosive [Unknown]
  - Feeling hot [Not Recovered/Not Resolved]
  - Diarrhoea [Recovered/Resolved]
  - Urinary tract infection [Unknown]
  - Nightmare [Unknown]
  - Nausea [Recovered/Resolved]
  - Acne [Not Recovered/Not Resolved]
  - Ear pain [Unknown]
  - Hernia [Unknown]
  - Feeling abnormal [Not Recovered/Not Resolved]
  - Pyrexia [Not Recovered/Not Resolved]
  - Dry eye [Unknown]
  - Dizziness [Not Recovered/Not Resolved]
  - Pruritus [Unknown]
  - Viral infection [Unknown]
  - Visual acuity reduced [Not Recovered/Not Resolved]
  - Sleep disorder [Not Recovered/Not Resolved]
  - Productive cough [Not Recovered/Not Resolved]
  - Skin wrinkling [Not Recovered/Not Resolved]
  - Nasopharyngitis [Not Recovered/Not Resolved]
  - Dry skin [Unknown]
  - Abdominal pain upper [Recovered/Resolved]
  - Blood uric acid increased [Unknown]
  - Hyperhidrosis [Not Recovered/Not Resolved]
  - Abdominal distension [Unknown]
  - Feeling cold [Unknown]
  - Nausea [Not Recovered/Not Resolved]
  - Flushing [Unknown]

NARRATIVE: CASE EVENT DATE: 20111014
